FAERS Safety Report 5531473-9 (Version None)
Quarter: 2007Q4

REPORT INFORMATION
  Report Type: 
  Country: None (occurrence: None)
  Receive Date: 20071203
  Receipt Date: 20071128
  Transmission Date: 20080405
  Serious: Yes (Hospitalization)
  Sender: FDA-Public Use
  Company Number: AT-ELI_LILLY_AND_COMPANY-AT200710006920

PATIENT
  Age: 20 Year
  Sex: Male

DRUGS (2)
  1. OLANZAPINE [Suspect]
     Indication: DELUSIONAL DISORDER, UNSPECIFIED TYPE
     Dosage: 20 MG, DAILY (1/D)
     Route: 048
     Dates: start: 20070514, end: 20070531
  2. CIPRALEX [Concomitant]
     Dosage: 10 MG, DAILY (1/D)
     Dates: start: 20070513, end: 20070531

REACTIONS (1)
  - HEPATIC ENZYME INCREASED [None]
